FAERS Safety Report 7820784-X (Version None)
Quarter: 2011Q4

REPORT INFORMATION
  Report Type: 
  Country: None (occurrence: None)
  Receive Date: 20111018
  Receipt Date: 20111007
  Transmission Date: 20120403
  Serious: Yes (Hospitalization)
  Sender: FDA-Public Use
  Company Number: FR-MERCK-1110FRA00056

PATIENT
  Age: 82 Year
  Sex: Female

DRUGS (13)
  1. COUMADIN [Concomitant]
     Route: 048
     Dates: end: 20110829
  2. LANTUS [Concomitant]
     Route: 065
  3. FUROSEMIDE [Suspect]
     Route: 048
     Dates: end: 20110808
  4. ARICEPT [Suspect]
     Route: 048
     Dates: start: 20100201, end: 20110823
  5. IRBESARTAN [Concomitant]
     Route: 065
  6. DOMPERIDONE [Concomitant]
     Route: 048
     Dates: start: 20110501, end: 20110829
  7. STABLON [Suspect]
     Route: 048
     Dates: start: 20110601, end: 20110829
  8. SOTALOL HYDROCHLORIDE [Concomitant]
     Route: 065
  9. NEXIUM [Suspect]
     Route: 048
     Dates: end: 20110829
  10. METFORMIN HCL [Suspect]
     Route: 048
     Dates: end: 20110808
  11. JANUVIA [Suspect]
     Route: 048
     Dates: end: 20110808
  12. FERROUS SULFATE [Concomitant]
     Route: 065
  13. CRESTOR [Concomitant]
     Route: 048
     Dates: end: 20110829

REACTIONS (2)
  - CYTOLYTIC HEPATITIS [None]
  - CHOLELITHIASIS [None]
